FAERS Safety Report 16465262 (Version 2)
Quarter: 2019Q3

REPORT INFORMATION
  Report Type: Report from Study
  Country: US (occurrence: US)
  Receive Date: 20190621
  Receipt Date: 20190702
  Transmission Date: 20191004
  Serious: Yes (Hospitalization, Other)
  Sender: FDA-Public Use
  Company Number: US-THERAPEUTICSMD-2019TMD01324

PATIENT
  Age: 71 Year
  Sex: Female

DRUGS (30)
  1. CALCIUM 600 + D(3) [Concomitant]
     Route: 048
  2. MELATONIN [Concomitant]
     Active Substance: MELATONIN
     Route: 048
  3. SPECTRAVITE ADULT 50 PLUS (LUT) [Concomitant]
     Route: 048
  4. CETIRIZINE [Concomitant]
     Active Substance: CETIRIZINE HYDROCHLORIDE
     Route: 048
  5. DIGOX [Concomitant]
     Active Substance: DIGOXIN
     Route: 048
  6. LEVEMIR U-100 [Concomitant]
     Dosage: INJECT BY SUBCUTANEOUS ROUTE PER PRESCRIBER^S INSTRUCTIONS. INSULIN DOSING REQUIRES INDIVIDUALIZAION
     Route: 058
  7. METAMUCIL [Concomitant]
     Active Substance: PLANTAGO SEED
     Route: 048
  8. NOVOLOG U-100 [Concomitant]
     Dosage: INJECT BY SUBCUTANEOUS ROUTE PER PRESCRIBER^S INSTRUCTIONS. INSULIN DOSING REQUIRES INDIVIDUALIZATIO
     Route: 058
  9. VITAMIN C [Concomitant]
     Active Substance: ASCORBIC ACID
     Route: 048
  10. DIFLUCAN [Concomitant]
     Active Substance: FLUCONAZOLE
     Route: 048
  11. TIKOSYN [Concomitant]
     Active Substance: DOFETILIDE
     Route: 048
  12. MACRODANTIN [Concomitant]
     Active Substance: NITROFURANTOIN
     Route: 048
  13. METOPROLOL TARTRATE. [Concomitant]
     Active Substance: METOPROLOL TARTRATE
     Route: 048
  14. TYLENOL EXTRA STRENGTH [Concomitant]
     Active Substance: ACETAMINOPHEN
     Route: 048
  15. IMVEXXY [Suspect]
     Active Substance: ESTRADIOL
     Indication: ATROPHIC VULVOVAGINITIS
     Dosage: 4 ?G, 1X/DAY AT BEDTIME
     Route: 067
     Dates: start: 201901, end: 2019
  16. BACILLUS COAGULANS-INULIN [Concomitant]
     Route: 048
  17. HYDRALAZINE [Concomitant]
     Active Substance: HYDRALAZINE HYDROCHLORIDE
     Route: 048
  18. MAGNESIUM [Concomitant]
     Active Substance: MAGNESIUM
     Route: 048
  19. NYSTATIN. [Concomitant]
     Active Substance: NYSTATIN
     Route: 061
  20. PROAIR HFA [Concomitant]
     Active Substance: ALBUTEROL SULFATE
  21. PROTONIX [Concomitant]
     Active Substance: PANTOPRAZOLE SODIUM
     Route: 048
  22. TERCONAZOLE. [Concomitant]
     Active Substance: TERCONAZOLE
     Dosage: 1 APPLICATORFUL BY VAGINAL ROUTE 1X/DAY AT BEDTIME
     Route: 067
     Dates: start: 20190516, end: 20190518
  23. ANUSOL-HC [Concomitant]
     Dosage: APPLY A THIN LAYER TO THE AFFECTED AREA(S) BY TOPICAL ROUTE 2 TIMES PER DAY FOR 14 DAYS
     Route: 061
     Dates: start: 20190516
  24. COUMADIN [Concomitant]
     Active Substance: WARFARIN SODIUM
     Route: 048
  25. IMVEXXY [Suspect]
     Active Substance: ESTRADIOL
     Indication: CYSTITIS
     Dosage: 4 ?G, 2X/WEEK AT BEDTIME ON MONDAY AND THURSDAY
     Route: 067
     Dates: start: 2019
  26. BENICAR [Concomitant]
     Active Substance: OLMESARTAN MEDOXOMIL
     Route: 048
  27. FISH OIL [Concomitant]
     Active Substance: FISH OIL
     Route: 048
  28. FUROSEMIDE. [Concomitant]
     Active Substance: FUROSEMIDE
     Route: 048
  29. VITAMIN B12-FOLIC ACID [Concomitant]
     Route: 048
  30. SYMBICORT [Concomitant]
     Active Substance: BUDESONIDE\FORMOTEROL FUMARATE DIHYDRATE

REACTIONS (2)
  - Myocardial infarction [Unknown]
  - Contraindicated product prescribed [Not Recovered/Not Resolved]

NARRATIVE: CASE EVENT DATE: 2019
